FAERS Safety Report 16138053 (Version 1)
Quarter: 2019Q1

REPORT INFORMATION
  Report Type: Spontaneous
  Country: US (occurrence: US)
  Receive Date: 20190330
  Receipt Date: 20190330
  Transmission Date: 20190418
  Serious: No
  Sender: FDA-Public Use
  Company Number: US-TEVA-2019-US-1021294

PATIENT
  Sex: Male

DRUGS (1)
  1. GABAPENTIN ACTAVIS [Suspect]
     Active Substance: GABAPENTIN
     Indication: POST-TRAUMATIC STRESS DISORDER
     Route: 065

REACTIONS (4)
  - Product substitution issue [Unknown]
  - Feeling abnormal [Unknown]
  - Ill-defined disorder [Unknown]
  - Disturbance in attention [Unknown]
